FAERS Safety Report 21639501 (Version 1)
Quarter: 2022Q4

REPORT INFORMATION
  Report Type: Spontaneous
  Country: US (occurrence: US)
  Receive Date: 20221124
  Receipt Date: 20221124
  Transmission Date: 20230112
  Serious: No
  Sender: FDA-Public Use
  Company Number: US-BRISTOL-MYERS SQUIBB COMPANY-2022-142979

PATIENT
  Age: 49 Year
  Sex: Female
  Weight: 101 kg

DRUGS (1)
  1. REVLIMID [Suspect]
     Active Substance: LENALIDOMIDE
     Indication: Plasma cell myeloma
     Dosage: 25 MG, D1-14 Q28 DAYS
     Route: 048
     Dates: start: 20210901

REACTIONS (2)
  - Nasopharyngitis [Recovering/Resolving]
  - Off label use [Unknown]
